FAERS Safety Report 8019305-0 (Version None)
Quarter: 2012Q1

REPORT INFORMATION
  Report Type: 
  Country: None (occurrence: None)
  Receive Date: 20120103
  Receipt Date: 20111223
  Transmission Date: 20120608
  Serious: No
  Sender: FDA-Public Use
  Company Number: US-B.I. PHARMACEUTICALS,INC./RIDGEFIELD-2011-BP-28757BP

PATIENT
  Sex: Female

DRUGS (7)
  1. BP PILLS [Concomitant]
     Indication: BLOOD PRESSURE ABNORMAL
  2. SPIRIVA [Suspect]
     Indication: CHRONIC OBSTRUCTIVE PULMONARY DISEASE
     Route: 055
     Dates: start: 20111101
  3. NASONEX [Concomitant]
     Indication: HYPERSENSITIVITY
  4. IBUPROFEN [Concomitant]
     Indication: PAIN
  5. STOMACH PILLS [Concomitant]
     Indication: GASTRIC ULCER
  6. CHOLESTEROL PILLS [Concomitant]
     Indication: BLOOD CHOLESTEROL INCREASED
  7. ASPIRIN [Concomitant]
     Indication: CARDIAC DISORDER

REACTIONS (2)
  - CATHETERISATION CARDIAC [None]
  - CYST [None]
